FAERS Safety Report 19912692 (Version 3)
Quarter: 2021Q4

REPORT INFORMATION
  Report Type: Other
  Country: US (occurrence: None)
  Receive Date: 20211004
  Receipt Date: 20211231
  Transmission Date: 20220304
  Serious: Yes (Hospitalization, Other)
  Sender: FDA-Public Use
  Company Number: US-ROCHE-2918579

PATIENT
  Age: 48 Year
  Sex: Female
  Weight: 81.720 kg

DRUGS (7)
  1. OCREVUS [Suspect]
     Active Substance: OCRELIZUMAB
     Indication: Relapsing-remitting multiple sclerosis
     Dosage: DATE OF TREATMENT: 31/AUG/2020, 12/MAR/2021,
     Route: 042
     Dates: start: 2019
  2. BETAPACE [Suspect]
     Active Substance: SOTALOL HYDROCHLORIDE
     Indication: Atrial fibrillation
     Route: 065
     Dates: start: 202108
  3. BETAPACE [Suspect]
     Active Substance: SOTALOL HYDROCHLORIDE
     Route: 065
  4. GABAPENTIN [Concomitant]
     Active Substance: GABAPENTIN
     Dates: start: 2012
  5. BACLOFEN [Concomitant]
     Active Substance: BACLOFEN
     Route: 048
  6. ZINC [Concomitant]
     Active Substance: ZINC
     Dates: start: 202108
  7. VITAMIN C [Concomitant]
     Active Substance: ASCORBIC ACID
     Dates: start: 202108

REACTIONS (6)
  - COVID-19 [Recovered/Resolved]
  - COVID-19 pneumonia [Recovered/Resolved with Sequelae]
  - Atrial fibrillation [Recovered/Resolved]
  - Hypotension [Unknown]
  - Heart rate decreased [Unknown]
  - Product dose omission issue [Unknown]

NARRATIVE: CASE EVENT DATE: 20210801
